FAERS Safety Report 10582130 (Version 2)
Quarter: 2015Q1

REPORT INFORMATION
  Report Type: Spontaneous
  Country: US (occurrence: US)
  Receive Date: 20141113
  Receipt Date: 20150123
  Transmission Date: 20150720
  Serious: No
  Sender: FDA-Public Use
  Company Number: US-009507513-1411USA005481

PATIENT
  Age: 43 Year
  Sex: Female
  Weight: 79.37 kg

DRUGS (1)
  1. OXYTROL FOR WOMEN [Suspect]
     Active Substance: OXYBUTYNIN
     Indication: BLADDER DISORDER
     Dosage: 1 DF, UNKNOWN
     Route: 062
     Dates: start: 20140501, end: 20140801

REACTIONS (1)
  - Drug ineffective [Unknown]

NARRATIVE: CASE EVENT DATE: 20140501
